FAERS Safety Report 23902256 (Version 1)
Quarter: 2024Q2

REPORT INFORMATION
  Report Type: Spontaneous
  Country: US (occurrence: None)
  Receive Date: 20240527
  Receipt Date: 20240527
  Transmission Date: 20240716
  Serious: No
  Sender: FDA-Public Use
  Company Number: US-ROCHE-3362866

PATIENT
  Sex: Female

DRUGS (1)
  1. ACTEMRA [Suspect]
     Active Substance: TOCILIZUMAB
     Indication: Arthritis
     Dosage: 162 MG/0.9 ML
     Route: 058

REACTIONS (2)
  - Product temperature excursion issue [Unknown]
  - No adverse event [Unknown]
